FAERS Safety Report 16737114 (Version 3)
Quarter: 2019Q4

REPORT INFORMATION
  Report Type: Spontaneous
  Country: GB (occurrence: GB)
  Receive Date: 20190823
  Receipt Date: 20191111
  Transmission Date: 20200122
  Serious: Yes (Other)
  Sender: FDA-Public Use
  Company Number: PHHY2019GB195715

PATIENT
  Age: 56 Year
  Sex: Male

DRUGS (3)
  1. SPIRONOLACTONE. [Concomitant]
     Active Substance: SPIRONOLACTONE
     Indication: PRODUCT USED FOR UNKNOWN INDICATION
     Dosage: 25 MG, QD
     Route: 048
  2. ENTRESTO [Suspect]
     Active Substance: SACUBITRIL\VALSARTAN
     Indication: PRODUCT USED FOR UNKNOWN INDICATION
     Dosage: 50 MG, BID (24/26 MG)
     Route: 048
     Dates: start: 20190708
  3. BISOPROLOL [Concomitant]
     Active Substance: BISOPROLOL
     Indication: PRODUCT USED FOR UNKNOWN INDICATION
     Dosage: 5 MG, QD
     Route: 048

REACTIONS (6)
  - Liver injury [Unknown]
  - Alanine aminotransferase increased [Recovered/Resolved]
  - Abdominal symptom [Unknown]
  - Gamma-glutamyltransferase increased [Recovered/Resolved]
  - Hepatic enzyme increased [Recovered/Resolved]
  - Cholestasis [Unknown]

NARRATIVE: CASE EVENT DATE: 20190725
